FAERS Safety Report 9233084 (Version 2)
Quarter: 2020Q2

REPORT INFORMATION
  Report Type: Spontaneous
  Country: GB (occurrence: GB)
  Receive Date: 20130416
  Receipt Date: 20200619
  Transmission Date: 20200714
  Serious: Yes (Other)
  Sender: FDA-Public Use
  Company Number: PHHY2013GB035173

PATIENT
  Age: 58 Year
  Sex: Male

DRUGS (11)
  1. EVEROLIMUS. [Suspect]
     Active Substance: EVEROLIMUS
     Indication: HYPOGLYCAEMIA
     Dosage: 5 MG, DAILY
     Route: 065
  2. OCTREOTIDE. [Suspect]
     Active Substance: OCTREOTIDE
     Indication: HYPOGLYCAEMIA
     Dosage: 500 UG, DAILY
     Route: 058
  3. DIAZOXIDE [Suspect]
     Active Substance: DIAZOXIDE
     Dosage: 350 MG, DAY
     Route: 065
  4. PREDNISOLONE. [Suspect]
     Active Substance: PREDNISOLONE
     Indication: IMMUNE THROMBOCYTOPENIA
     Dosage: 30 MG, QD
     Route: 065
  5. OCTREOTIDE. [Suspect]
     Active Substance: OCTREOTIDE
     Indication: INSULINOMA
     Dosage: 300 UG, DAY
     Route: 058
  6. DIAZOXIDE [Suspect]
     Active Substance: DIAZOXIDE
     Indication: INSULINOMA
     Dosage: 150 MG, DAILY
     Route: 065
  7. GLUCOSE [Concomitant]
     Active Substance: DEXTROSE
     Indication: PRODUCT USED FOR UNKNOWN INDICATION
     Dosage: UNK, QH
     Route: 048
  8. DEXTROSE. [Concomitant]
     Active Substance: DEXTROSE
     Indication: HYPOGLYCAEMIA
     Dosage: UNK, QH
     Route: 042
  9. EVEROLIMUS. [Suspect]
     Active Substance: EVEROLIMUS
     Indication: INSULINOMA
     Dosage: 10 MG, DAILY
     Route: 065
     Dates: start: 200902
  10. DIAZOXIDE [Suspect]
     Active Substance: DIAZOXIDE
     Indication: HYPOGLYCAEMIA
     Dosage: 300 MG, QD
     Route: 065
  11. TEMOZOLAMIDE [Concomitant]
     Active Substance: TEMOZOLOMIDE
     Indication: METASTASES TO LIVER
     Dosage: THREE CYCLES
     Route: 065
     Dates: start: 200901

REACTIONS (6)
  - Aspartate aminotransferase increased [Unknown]
  - Weight decreased [Recovered/Resolved]
  - Drug ineffective [Recovered/Resolved]
  - Hypoglycaemia [Recovered/Resolved]
  - Alanine aminotransferase increased [Unknown]
  - Condition aggravated [Recovered/Resolved]
